FAERS Safety Report 8838893 (Version 1)
Quarter: 2012Q4

REPORT INFORMATION
  Report Type: 
  Country: US (occurrence: US)
  Receive Date: 20121015
  Receipt Date: 20121015
  Transmission Date: 20130627
  Serious: No
  Sender: FDA-Public Use
  Company Number: US-009507513-1210USA003491

PATIENT
  Sex: Male

DRUGS (5)
  1. SINGULAIR [Suspect]
     Dosage: UNK
     Route: 048
  2. FORADIL [Suspect]
     Indication: ASTHMA
     Dosage: 1 DF, bid
     Route: 055
     Dates: start: 201010
  3. ALVESCO [Concomitant]
  4. ALLOPURINOL [Concomitant]
  5. HYDROCHLOROTHIAZIDE [Concomitant]

REACTIONS (1)
  - Lung infection [Not Recovered/Not Resolved]
